FAERS Safety Report 8560159-1 (Version None)
Quarter: 2012Q3

REPORT INFORMATION
  Report Type: 
  Country: None (occurrence: None)
  Receive Date: 20120802
  Receipt Date: 20120725
  Transmission Date: 20120928
  Serious: Yes (Other)
  Sender: FDA-Public Use
  Company Number: US-BAYER-2012-061312

PATIENT
  Age: 29 Year
  Sex: Female
  Weight: 55.782 kg

DRUGS (3)
  1. MIRENA [Suspect]
     Indication: CONTRACEPTION
  2. MIRENA [Suspect]
     Indication: MENSTRUAL DISORDER
     Dosage: 20 ?G/D, CONT
     Route: 015
     Dates: start: 20110708, end: 20120613
  3. HYPNOTICS AND SEDATIVES [Concomitant]
     Indication: SEDATIVE THERAPY
     Dosage: UNK
     Dates: start: 20120613, end: 20120613

REACTIONS (5)
  - VAGINAL HAEMORRHAGE [None]
  - PAIN [None]
  - NAUSEA [None]
  - DEVICE DISLOCATION [None]
  - HEADACHE [None]
